FAERS Safety Report 9581948 (Version 2)
Quarter: 2014Q1

REPORT INFORMATION
  Report Type: Spontaneous
  Country: US (occurrence: US)
  Receive Date: 20131002
  Receipt Date: 20140219
  Transmission Date: 20141002
  Serious: Yes (Other)
  Sender: FDA-Public Use
  Company Number: US-PFIZER INC-2013278874

PATIENT
  Age: 56 Year
  Sex: Female
  Weight: 74.83 kg

DRUGS (4)
  1. CELEBREX [Suspect]
     Indication: OSTEOARTHRITIS
     Dosage: 200 MG, 1X/DAY
  2. OMEPRAZOLE [Concomitant]
     Dosage: UNK
  3. ZANTAC [Concomitant]
     Dosage: UNK
  4. DEXILANT [Concomitant]
     Dosage: UNK

REACTIONS (6)
  - Neoplasm malignant [Unknown]
  - Fibromyalgia [Unknown]
  - Gastrointestinal inflammation [Unknown]
  - Pain [Unknown]
  - Joint swelling [Unknown]
  - Arthropathy [Unknown]
